FAERS Safety Report 20869120 (Version 1)
Quarter: 2022Q2

REPORT INFORMATION
  Report Type: Spontaneous
  Country: US (occurrence: None)
  Receive Date: 20220524
  Receipt Date: 20220524
  Transmission Date: 20220721
  Serious: Yes (Other)
  Sender: FDA-Public Use
  Company Number: None

PATIENT
  Age: 65 Year
  Sex: Female
  Weight: 63.5 kg

DRUGS (20)
  1. FASENRA [Suspect]
     Active Substance: BENRALIZUMAB
     Indication: Asthma
     Dates: start: 20220406
  2. ALBUTEROL [Concomitant]
     Active Substance: ALBUTEROL
  3. CROMOLYN SODIUM [Concomitant]
     Active Substance: CROMOLYN SODIUM
  4. BREO ELLIPTA [Concomitant]
     Active Substance: FLUTICASONE FUROATE\VILANTEROL TRIFENATATE
  5. DEXILANT [Concomitant]
     Active Substance: DEXLANSOPRAZOLE
  6. FAMOTIDINE [Concomitant]
     Active Substance: FAMOTIDINE
  7. ESTRADIOL [Concomitant]
     Active Substance: ESTRADIOL
  8. PROLIA [Concomitant]
     Active Substance: DENOSUMAB
  9. RESTASIS [Concomitant]
     Active Substance: CYCLOSPORINE
  10. LACTASE [Concomitant]
     Active Substance: LACTASE
  11. PROBIOTICS NOS [Concomitant]
     Active Substance: PROBIOTICS NOS
  12. CROMOLYN [Concomitant]
     Active Substance: CROMOLYN
  13. MIRALAX [Concomitant]
     Active Substance: POLYETHYLENE GLYCOL 3350
  14. FLONASE [Concomitant]
     Active Substance: FLUTICASONE PROPIONATE
  15. IBUPROFEN [Concomitant]
     Active Substance: IBUPROFEN
  16. TYLENOL [Concomitant]
     Active Substance: ACETAMINOPHEN
  17. Vitamins 12 [Concomitant]
  18. VITAMIN D3 [Concomitant]
     Active Substance: CHOLECALCIFEROL
  19. BIOTIN [Concomitant]
     Active Substance: BIOTIN
  20. FISH OIL [Concomitant]
     Active Substance: FISH OIL

REACTIONS (2)
  - Chills [None]
  - Chills [None]

NARRATIVE: CASE EVENT DATE: 20220406
